FAERS Safety Report 4633821-0 (Version None)
Quarter: 2005Q2

REPORT INFORMATION
  Report Type: 
  Country: None (occurrence: None)
  Receive Date: 20050411
  Receipt Date: 20050404
  Transmission Date: 20051028
  Serious: Yes (Other)
  Sender: FDA-Public Use
  Company Number: CHPA2003US02256

PATIENT
  Age: 41 Year
  Sex: Female
  Weight: 105.2 kg

DRUGS (26)
  1. EX-LAX LAXATIVE UNKNOWN FORMULA (NCH) [Suspect]
     Indication: WEIGHT CONTROL
     Dates: start: 19790101
  2. DULCOLAX [Suspect]
     Indication: WEIGHT CONTROL
     Dates: start: 19790101
  3. CORRECTOL [Suspect]
     Indication: WEIGHT CONTROL
     Dosage: ORAL
     Route: 048
     Dates: start: 19790101
  4. FEEN-A-MINT (PHENOLPHTHALEIN) [Suspect]
     Indication: WEIGHT CONTROL
     Dates: start: 19790101
  5. EPSOM SALT (MAGNESIUM SULFATE) [Suspect]
     Indication: CONSTIPATION
  6. MILK OF MAGNESIA TAB [Suspect]
     Indication: CONSTIPATION
  7. NEXIUM [Concomitant]
  8. ZESTRIL [Concomitant]
  9. REGLAN [Concomitant]
  10. PREVACID [Concomitant]
  11. PRINIVIL [Concomitant]
  12. ALLEGRA-D [Concomitant]
  13. SUDAFED 12 HOUR [Concomitant]
  14. ADVIL [Concomitant]
  15. LEXAPRO [Concomitant]
  16. DILTIAZEM [Concomitant]
  17. AVALIDE [Concomitant]
  18. DIOVAN ^CIBA-GEIGY^ (VALSARTAN) [Concomitant]
  19. PRILOSEC [Concomitant]
  20. PEPCID [Concomitant]
  21. GALENIC /PHENTERMINE/FENFLURAMINE/ (FENFLURAMINE, PHENTERMINE) [Concomitant]
  22. REDUX [Concomitant]
  23. TAGAMET [Concomitant]
  24. WELLBUTRIN [Concomitant]
  25. CEFZIL [Concomitant]
  26. ZANTAC [Concomitant]

REACTIONS (29)
  - BACK PAIN [None]
  - BALANCE DISORDER [None]
  - CHEST PAIN [None]
  - DEPRESSION [None]
  - DIZZINESS [None]
  - DRUG DEPENDENCE [None]
  - DRUG INEFFECTIVE [None]
  - DYSPNOEA [None]
  - ECONOMIC PROBLEM [None]
  - EUSTACHIAN TUBE DYSFUNCTION [None]
  - FATIGUE [None]
  - HYPERSENSITIVITY [None]
  - INJURY [None]
  - LAXATIVE ABUSE [None]
  - LIVER FUNCTION TEST ABNORMAL [None]
  - MUSCLE DISORDER [None]
  - MYALGIA [None]
  - NECK MASS [None]
  - NECK PAIN [None]
  - PAIN [None]
  - PEPTIC ULCER [None]
  - PLEURITIC PAIN [None]
  - POSITIVE ROMBERGISM [None]
  - RESPIRATORY DISORDER [None]
  - SENSATION OF HEAVINESS [None]
  - SINUSITIS [None]
  - SLEEP DISORDER [None]
  - VERTIGO POSITIONAL [None]
  - WEIGHT INCREASED [None]
